FAERS Safety Report 11616612 (Version 3)
Quarter: 2017Q2

REPORT INFORMATION
  Report Type: Report from Study
  Country: None (occurrence: BR)
  Receive Date: 20151009
  Receipt Date: 20170627
  Transmission Date: 20170829
  Serious: Yes (Hospitalization, Other)
  Sender: FDA-Public Use
  Company Number: BR-ABBVIE-13P-020-1132456-00

PATIENT
  Age: 44 Year
  Sex: Male
  Weight: 78 kg

DRUGS (7)
  1. PREDNISONE. [Concomitant]
     Active Substance: PREDNISONE
     Indication: PRODUCT USED FOR UNKNOWN INDICATION
     Route: 048
  2. ISOGEL [Concomitant]
     Indication: EYE PRURITUS
     Route: 061
  3. HUMIRA [Suspect]
     Active Substance: ADALIMUMAB
     Route: 058
  4. HUMIRA [Suspect]
     Active Substance: ADALIMUMAB
     Route: 058
     Dates: start: 201705
  5. HUMIRA [Suspect]
     Active Substance: ADALIMUMAB
     Dosage: WEEK 1
     Route: 058
     Dates: start: 200901, end: 200901
  6. HUMIRA [Suspect]
     Active Substance: ADALIMUMAB
     Indication: CROHN^S DISEASE
     Dosage: WEEK ZERO
     Route: 058
     Dates: start: 20090101, end: 20090101
  7. MALTODEXTRIN + POTASSIUM CASEINATE + ASSOCIATIONS (MODULEN) [Concomitant]
     Indication: ENTERAL NUTRITION

REACTIONS (31)
  - Procedural complication [Recovered/Resolved]
  - Intestinal fistula [Recovered/Resolved]
  - Skin ulcer [Unknown]
  - Immunodeficiency [Unknown]
  - Osteopenia [Unknown]
  - Cardiac arrest [Recovered/Resolved]
  - Spinal osteoarthritis [Unknown]
  - Crohn^s disease [Unknown]
  - Pyoderma gangrenosum [Recovered/Resolved]
  - Drug ineffective [Unknown]
  - Post procedural complication [Unknown]
  - Dry eye [Not Recovered/Not Resolved]
  - Ulcerative gastritis [Unknown]
  - Oesophagitis ulcerative [Unknown]
  - Dry skin [Not Recovered/Not Resolved]
  - Wound [Unknown]
  - Hepatomegaly [Unknown]
  - Intestinal obstruction [Recovered/Resolved]
  - Helicobacter gastritis [Recovered/Resolved]
  - Gastric fistula [Recovered/Resolved]
  - Osteoarthritis [Unknown]
  - Ileal ulcer [Unknown]
  - Malnutrition [Recovered/Resolved]
  - Intestinal resection [Unknown]
  - Cardiac disorder [Unknown]
  - Duodenal ulcer [Unknown]
  - Large intestine perforation [Unknown]
  - Intestinal perforation [Recovered/Resolved]
  - Pruritus [Recovered/Resolved]
  - Full blood count abnormal [Unknown]
  - Ascites [Unknown]

NARRATIVE: CASE EVENT DATE: 2009
